FAERS Safety Report 17060734 (Version 1)
Quarter: 2019Q4

REPORT INFORMATION
  Report Type: Report from Study
  Country: CR (occurrence: CR)
  Receive Date: 20191121
  Receipt Date: 20191121
  Transmission Date: 20200122
  Serious: Yes (Other)
  Sender: FDA-Public Use
  Company Number: CR-SA-2018SA070419

PATIENT
  Age: 82 Year
  Sex: Male
  Weight: 68 kg

DRUGS (4)
  1. HYDROCHLOROTHIAZIDE/IRBESARTAN [Suspect]
     Active Substance: HYDROCHLOROTHIAZIDE\IRBESARTAN
     Indication: BLOOD PRESSURE ABNORMAL
     Dosage: 1 DF (300 MG OF IRBESARTAN AND 25 MG OF HYDROCHLOROTHIAZIDE), QD
     Route: 048
     Dates: start: 2006, end: 2017
  2. CLOPIDOGREL BISULFATE. [Suspect]
     Active Substance: CLOPIDOGREL BISULFATE
     Dosage: 1 DF, QD
     Route: 048
     Dates: start: 2004
  3. HYDROCHLOROTHIAZIDE/IRBESARTAN [Suspect]
     Active Substance: HYDROCHLOROTHIAZIDE\IRBESARTAN
     Indication: HYPERTENSION
     Dosage: 1 DF (300 MG OF IRBESARTAN AND 25 MG OF HYDROCHLOROTHIAZIDE), QD
     Route: 048
     Dates: start: 2017, end: 2017
  4. APROVEL [Suspect]
     Active Substance: IRBESARTAN
     Indication: HYPERTENSION
     Dosage: 1 DF, QD
     Route: 048
     Dates: start: 2017

REACTIONS (5)
  - Intervertebral disc protrusion [Recovering/Resolving]
  - Spinal pain [Recovering/Resolving]
  - Hypersensitivity [Recovered/Resolved]
  - Gait disturbance [Recovering/Resolving]
  - Rash [Recovered/Resolved]

NARRATIVE: CASE EVENT DATE: 2017
